FAERS Safety Report 8932558 (Version 1)
Quarter: 2012Q4

REPORT INFORMATION
  Report Type: Spontaneous
  Country: US (occurrence: None)
  Receive Date: 20121121
  Receipt Date: 20121121
  Transmission Date: 20130627
  Serious: No
  Sender: FDA-Public Use
  Company Number: None

PATIENT
  Age: 66 Year
  Sex: Female
  Weight: 66.68 kg

DRUGS (1)
  1. ZIOPTAN [Suspect]
     Indication: GLAUCOMA
     Dosage: 1 drop each eye daily eye
     Dates: start: 2012

REACTIONS (5)
  - Hair colour changes [None]
  - Pruritus [None]
  - Ocular hyperaemia [None]
  - Eye swelling [None]
  - Eye pain [None]
